FAERS Safety Report 7608084-4 (Version None)
Quarter: 2011Q3

REPORT INFORMATION
  Report Type: 
  Country: None (occurrence: None)
  Receive Date: 20110706
  Receipt Date: 20110628
  Transmission Date: 20111222
  Serious: Yes (Life-Threatening, Other)
  Sender: FDA-Public Use
  Company Number: DSA_46940_2011

PATIENT
  Sex: Female

DRUGS (5)
  1. RISPERDAL [Concomitant]
  2. COUMADIN [Concomitant]
  3. STALEVO 100 [Concomitant]
  4. XENAZINE [Suspect]
     Indication: TARDIVE DYSKINESIA
     Dosage: 12.5 MG TID ORAL, DF
     Route: 048
     Dates: start: 20101109
  5. CEREFOLIN NAC [Concomitant]

REACTIONS (7)
  - DELUSION [None]
  - DRUG INTERACTION [None]
  - HALLUCINATION, VISUAL [None]
  - DYSPHAGIA [None]
  - MUSCULAR WEAKNESS [None]
  - DYSKINESIA [None]
  - TREMOR [None]
